FAERS Safety Report 10960704 (Version 2)
Quarter: 2015Q2

REPORT INFORMATION
  Report Type: Spontaneous
  Country: US (occurrence: US)
  Receive Date: 20150327
  Receipt Date: 20150501
  Transmission Date: 20150821
  Serious: Yes (Other)
  Sender: FDA-Public Use
  Company Number: US-PFIZER INC-2015104716

PATIENT
  Age: 68 Year
  Sex: Male

DRUGS (1)
  1. VIAGRA [Suspect]
     Active Substance: SILDENAFIL CITRATE
     Indication: ERECTILE DYSFUNCTION
     Dosage: UNK, (25-50 MG TWICE PER WK)
     Dates: start: 200005, end: 201412

REACTIONS (4)
  - Visual impairment [Not Recovered/Not Resolved]
  - Retinal vein occlusion [Not Recovered/Not Resolved]
  - Vision blurred [Not Recovered/Not Resolved]
  - Metamorphopsia [Not Recovered/Not Resolved]

NARRATIVE: CASE EVENT DATE: 20140615
